FAERS Safety Report 9760955 (Version 2)
Quarter: 2014Q1

REPORT INFORMATION
  Report Type: Spontaneous
  Country: US (occurrence: US)
  Receive Date: 20131216
  Receipt Date: 20140224
  Transmission Date: 20141002
  Serious: Yes (Other)
  Sender: FDA-Public Use
  Company Number: US-PFIZER INC-2013357675

PATIENT
  Age: 80 Year
  Sex: Female

DRUGS (3)
  1. XELJANZ [Suspect]
     Dosage: 5 MG
     Route: 048
     Dates: start: 201309, end: 201310
  2. MTX [Concomitant]
     Dosage: 17.5 MG, UNK
  3. PREDNISONE [Concomitant]
     Indication: RHEUMATOID ARTHRITIS
     Dosage: 9 MG, 1X/DAY

REACTIONS (8)
  - Respiratory tract infection [Not Recovered/Not Resolved]
  - Bronchitis [Unknown]
  - Diarrhoea [Recovered/Resolved]
  - Cystitis [Unknown]
  - Nasopharyngitis [Unknown]
  - Faeces discoloured [Unknown]
  - Abdominal pain [Recovered/Resolved]
  - Upper respiratory tract infection [Not Recovered/Not Resolved]
